FAERS Safety Report 9308934 (Version 1)
Quarter: 2013Q2

REPORT INFORMATION
  Report Type: Spontaneous
  Country: US (occurrence: US)
  Receive Date: 20130524
  Receipt Date: 20130524
  Transmission Date: 20140414
  Serious: Yes (Other)
  Sender: FDA-Public Use
  Company Number: US-ASTRAZENECA-2013SE34413

PATIENT
  Age: 60 Year
  Sex: Male

DRUGS (5)
  1. SEROQUEL [Suspect]
     Indication: BIPOLAR DISORDER
     Route: 048
  2. SEROQUEL [Suspect]
     Indication: BIPOLAR DISORDER
     Route: 048
  3. WELLBUTRIN [Concomitant]
  4. ANTIDEPRESSANT [Concomitant]
  5. XANAX [Concomitant]

REACTIONS (1)
  - Accidental overdose [Recovered/Resolved]
